FAERS Safety Report 9695895 (Version 7)
Quarter: 2016Q1

REPORT INFORMATION
  Report Type: Report from Study
  Country: BR (occurrence: BR)
  Receive Date: 20131119
  Receipt Date: 20160128
  Transmission Date: 20160526
  Serious: Yes (Hospitalization, Other)
  Sender: FDA-Public Use
  Company Number: BR-ROCHE-725088

PATIENT
  Age: 43 Year
  Sex: Female
  Weight: 55 kg

DRUGS (32)
  1. DEFLAZACORT [Concomitant]
     Active Substance: DEFLAZACORT
     Route: 065
  2. CHLOROQUINE PHOSPHATE. [Concomitant]
     Active Substance: CHLOROQUINE PHOSPHATE
     Indication: BONE DISORDER
     Route: 065
  3. TRAMAL [Concomitant]
     Active Substance: TRAMADOL
  4. MABTHERA [Suspect]
     Active Substance: RITUXIMAB
     Indication: SYSTEMIC LUPUS ERYTHEMATOSUS
     Dosage: FORM: INFUSION
     Route: 042
     Dates: start: 20090210, end: 20100308
  5. MABTHERA [Suspect]
     Active Substance: RITUXIMAB
     Route: 042
  6. MABTHERA [Suspect]
     Active Substance: RITUXIMAB
     Route: 042
  7. DEFLAZACORT [Concomitant]
     Active Substance: DEFLAZACORT
     Route: 065
  8. HYDROXYCHLOROQUINE [Concomitant]
     Active Substance: HYDROXYCHLOROQUINE
     Route: 065
  9. AMLODIPINE [Concomitant]
     Active Substance: AMLODIPINE BESYLATE
  10. PREDNISONE. [Concomitant]
     Active Substance: PREDNISONE
     Indication: RENAL DISORDER
     Route: 065
  11. MABTHERA [Suspect]
     Active Substance: RITUXIMAB
     Route: 042
  12. DEFLAZACORT [Concomitant]
     Active Substance: DEFLAZACORT
     Route: 065
  13. RIVOTRIL [Concomitant]
     Active Substance: CLONAZEPAM
     Indication: INSOMNIA
  14. RENAGEL [Concomitant]
     Active Substance: SEVELAMER HYDROCHLORIDE
  15. MABTHERA [Suspect]
     Active Substance: RITUXIMAB
     Route: 042
  16. ACTEMRA [Suspect]
     Active Substance: TOCILIZUMAB
     Indication: RHEUMATOID ARTHRITIS
     Route: 042
     Dates: start: 20100201
  17. RANITIDINE [Concomitant]
     Active Substance: RANITIDINE\RANITIDINE HYDROCHLORIDE
     Route: 065
  18. PRELONE [Concomitant]
     Active Substance: PREDNISOLONE
  19. AAS [Concomitant]
     Active Substance: ASPIRIN
     Route: 065
  20. LYRICA [Concomitant]
     Active Substance: PREGABALIN
     Route: 065
  21. AZITHROMYCIN ANHYDROUS. [Suspect]
     Active Substance: AZITHROMYCIN ANHYDROUS
     Indication: PYREXIA
  22. EUTHYROX [Concomitant]
     Active Substance: LEVOTHYROXINE SODIUM
     Route: 065
  23. HYDROXYCHLOROQUINE [Concomitant]
     Active Substance: HYDROXYCHLOROQUINE
     Dosage: DRUG REPORTED AS: HYDROXYCHLOROQUINE FORMULA
     Route: 065
  24. CAPTOPRIL. [Concomitant]
     Active Substance: CAPTOPRIL
     Indication: HYPERTENSION
     Route: 065
  25. NORIPURUM [Concomitant]
     Active Substance: IRON POLYMALTOSE
  26. MABTHERA [Suspect]
     Active Substance: RITUXIMAB
     Route: 042
  27. AZITHROMYCIN ANHYDROUS. [Suspect]
     Active Substance: AZITHROMYCIN ANHYDROUS
     Indication: OROPHARYNGEAL PAIN
     Route: 065
  28. EUTHYROX [Concomitant]
     Active Substance: LEVOTHYROXINE SODIUM
     Route: 065
  29. CELESTONE [Concomitant]
     Active Substance: BETAMETHASONE
     Route: 065
  30. METHOTREXATE [Concomitant]
     Active Substance: METHOTREXATE
  31. EUTIROX [Concomitant]
     Active Substance: LEVOTHYROXINE SODIUM
     Indication: HYPOTHYROIDISM
     Route: 065
  32. HYDROCHLOROTHIAZIDE. [Concomitant]
     Active Substance: HYDROCHLOROTHIAZIDE
     Indication: HYPERTENSION

REACTIONS (53)
  - Oral herpes [Unknown]
  - Defaecation urgency [Recovering/Resolving]
  - Joint range of motion decreased [Unknown]
  - Tooth fracture [Recovered/Resolved]
  - Cyst [Unknown]
  - White blood cell count decreased [Not Recovered/Not Resolved]
  - Dizziness [Recovering/Resolving]
  - Vomiting [Recovering/Resolving]
  - Sensation of foreign body [Not Recovered/Not Resolved]
  - Anaemia [Recovering/Resolving]
  - Malaise [Recovering/Resolving]
  - Erythema [Recovering/Resolving]
  - Pyrexia [Not Recovered/Not Resolved]
  - White blood cell count decreased [Unknown]
  - Diarrhoea [Recovered/Resolved]
  - Renal impairment [Unknown]
  - Oropharyngeal pain [Not Recovered/Not Resolved]
  - Rheumatoid arthritis [Unknown]
  - Renal failure [Recovering/Resolving]
  - Dyspnoea [Recovering/Resolving]
  - Hand deformity [Unknown]
  - Decreased appetite [Recovering/Resolving]
  - Oropharyngeal pain [Recovered/Resolved]
  - Abdominal pain upper [Not Recovered/Not Resolved]
  - Urinary tract infection [Recovered/Resolved]
  - Pharyngeal inflammation [Unknown]
  - Pain [Unknown]
  - Weight increased [Unknown]
  - Head discomfort [Recovering/Resolving]
  - Rotavirus infection [Unknown]
  - Hypersensitivity [Unknown]
  - Nausea [Recovered/Resolved]
  - Dyspnoea [Not Recovered/Not Resolved]
  - Off label use [Unknown]
  - Renal failure [Unknown]
  - Fatigue [Unknown]
  - Musculoskeletal discomfort [Recovering/Resolving]
  - Hot flush [Recovering/Resolving]
  - Nausea [Recovering/Resolving]
  - Peripheral swelling [Unknown]
  - Tachycardia [Unknown]
  - Osteoarthritis [Not Recovered/Not Resolved]
  - Swelling [Unknown]
  - Palpitations [Recovered/Resolved]
  - Oropharyngeal pain [Not Recovered/Not Resolved]
  - Anaemia [Not Recovered/Not Resolved]
  - Cough [Recovering/Resolving]
  - Pruritus [Recovering/Resolving]
  - Finger deformity [Unknown]
  - Lymphadenitis bacterial [Recovering/Resolving]
  - Sleep disorder [Not Recovered/Not Resolved]
  - Burning sensation [Unknown]
  - Swollen tongue [Recovered/Resolved]

NARRATIVE: CASE EVENT DATE: 200902
